FAERS Safety Report 8955102 (Version 1)
Quarter: 2012Q4

REPORT INFORMATION
  Report Type: 
  Country: CH (occurrence: CH)
  Receive Date: 20121207
  Receipt Date: 20121207
  Transmission Date: 20130627
  Serious: Yes (Hospitalization, Other)
  Sender: FDA-Public Use
  Company Number: CH-ASTRAZENECA-2012SE90042

PATIENT
  Age: 71 Year
  Sex: Male
  Weight: 83 kg

DRUGS (13)
  1. SEROQUEL [Suspect]
     Dosage: 12.5 mg, 3 per 1 day
     Route: 048
     Dates: start: 20121102
  2. ACTIQ [Suspect]
     Dosage: 400 ug, 6 per 1 day
     Route: 048
     Dates: start: 20121102
  3. PALLADONE [Suspect]
     Dosage: 2.6 mg, 2 per 1 day
     Route: 048
     Dates: start: 20121102
  4. TEMESTA [Suspect]
     Route: 048
     Dates: start: 20121102
  5. FENTANYL [Suspect]
     Dosage: 125 ug, 2 per 1 week
     Route: 062
     Dates: start: 20121102
  6. CIPRALEX [Concomitant]
     Dosage: 10 mg, 2 per 1 day
     Route: 048
  7. PREDNISON [Concomitant]
     Route: 048
  8. ASPIRIN CARDIO [Concomitant]
     Route: 048
  9. TOREM [Concomitant]
     Route: 048
  10. PLENDIL [Concomitant]
     Route: 048
  11. PANTOZOL [Concomitant]
     Route: 048
  12. MINAC [Concomitant]
     Dosage: 50 mg, 2 per 2 day
     Route: 048
  13. TARDYFERON [Concomitant]
     Route: 048

REACTIONS (3)
  - Toxicity to various agents [Recovered/Resolved]
  - Confusional state [Recovered/Resolved]
  - Pneumonia [Recovered/Resolved]
